FAERS Safety Report 5177247-2 (Version None)
Quarter: 2006Q4

REPORT INFORMATION
  Report Type: 
  Country: None (occurrence: None)
  Receive Date: 20061218
  Receipt Date: 20061211
  Transmission Date: 20070319
  Serious: Yes (Hospitalization)
  Sender: FDA-Public Use
  Company Number: 2006UW27378

PATIENT
  Sex: Male

DRUGS (5)
  1. IRESSA [Suspect]
     Route: 048
     Dates: start: 20030101
  2. COUMADIN [Concomitant]
  3. DIGOXIN [Concomitant]
  4. INSULIN [Concomitant]
  5. POTASSIUM ACETATE [Concomitant]

REACTIONS (2)
  - SPEECH DISORDER [None]
  - UNRESPONSIVE TO STIMULI [None]
